FAERS Safety Report 13835113 (Version 1)
Quarter: 2017Q3

REPORT INFORMATION
  Report Type: Spontaneous
  Country: FR (occurrence: FR)
  Receive Date: 20170804
  Receipt Date: 20170804
  Transmission Date: 20171127
  Serious: Yes (Hospitalization)
  Sender: FDA-Public Use
  Company Number: FR-AUROBINDO-AUR-APL-2017-37900

PATIENT
  Age: 77 Year
  Sex: Female

DRUGS (2)
  1. KETOCONAZOLE HRA PHARMA [Suspect]
     Active Substance: KETOCONAZOLE
     Indication: CUSHING^S SYNDROME
     Dosage: 200 MG, TWO TIMES A DAY
     Route: 048
     Dates: start: 20170518, end: 20170725
  2. REPAGLINIDE ARROW GENERIC 1 MG TABLET [Suspect]
     Active Substance: REPAGLINIDE
     Indication: DIABETES MELLITUS
     Dosage: 1 MG, TWO TIMES A DAY
     Route: 048
     Dates: end: 20170626

REACTIONS (1)
  - Febrile neutropenia [Recovered/Resolved]

NARRATIVE: CASE EVENT DATE: 20170623
